FAERS Safety Report 4728252-9 (Version None)
Quarter: 2005Q3

REPORT INFORMATION
  Report Type: 
  Country: None (occurrence: None)
  Receive Date: 20050727
  Receipt Date: 20050711
  Transmission Date: 20060218
  Serious: Yes (Hospitalization)
  Sender: FDA-Public Use
  Company Number: 200503IM000113

PATIENT
  Age: 55 Year
  Sex: Male

DRUGS (8)
  1. ADVAFERON (A643 - INTERFERON ALFACON-1) [Suspect]
     Indication: HEPATITIS C
     Dosage: 12 MIU; SUBCUTANEOUS (SEE IMAGE)
     Route: 058
     Dates: start: 20031007, end: 20031021
  2. ADVAFERON (A643 - INTERFERON ALFACON-1) [Suspect]
     Indication: HEPATITIS C
     Dosage: 12 MIU; SUBCUTANEOUS (SEE IMAGE)
     Route: 058
     Dates: start: 20031023, end: 20031029
  3. ADVAFERON (A643 - INTERFERON ALFACON-1) [Suspect]
     Indication: HEPATITIS C
     Dosage: 12 MIU; SUBCUTANEOUS (SEE IMAGE)
     Route: 058
     Dates: start: 20031110, end: 20040322
  4. PEGASYS [Concomitant]
  5. URSODEOXYCHOLIC ACID [Concomitant]
  6. LAFUTIDINE [Concomitant]
  7. LANSOPRAZOLE [Concomitant]
  8. OMEPRAZOLE [Concomitant]

REACTIONS (3)
  - ANOREXIA [None]
  - DEPRESSED MOOD [None]
  - STRESS [None]
